FAERS Safety Report 5464891-8 (Version None)
Quarter: 2007Q3

REPORT INFORMATION
  Report Type: 
  Country: None (occurrence: None)
  Receive Date: 20070921
  Receipt Date: 20070910
  Transmission Date: 20080115
  Serious: Yes (Hospitalization)
  Sender: FDA-Public Use
  Company Number: US-PFIZER INC-2007076638

PATIENT
  Sex: Female
  Weight: 98 kg

DRUGS (11)
  1. DOXORUBICIN HCL [Suspect]
  2. REBIF [Suspect]
     Indication: MULTIPLE SCLEROSIS
     Dosage: DAILY DOSE:8.8MCG
     Route: 058
     Dates: start: 20070618, end: 20070626
  3. ARICEPT [Concomitant]
     Route: 048
  4. CYCLOBENZAPRINE HCL [Concomitant]
     Dosage: TEXT:10 MG
     Route: 048
  5. VICODIN [Concomitant]
     Route: 048
  6. GABAPENTIN [Concomitant]
     Route: 048
  7. ZANAFLEX [Concomitant]
     Route: 048
  8. DURADRIN [Concomitant]
     Route: 048
  9. CARBAMAZEPINE [Concomitant]
     Route: 048
  10. DIAZEPAM [Concomitant]
     Route: 048
  11. LASIX [Concomitant]

REACTIONS (7)
  - CANDIDIASIS [None]
  - CARDIAC FAILURE CONGESTIVE [None]
  - CHRONIC OBSTRUCTIVE PULMONARY DISEASE [None]
  - INFLUENZA LIKE ILLNESS [None]
  - PNEUMONIA [None]
  - RENAL FAILURE ACUTE [None]
  - SUPRAVENTRICULAR TACHYCARDIA [None]
